FAERS Safety Report 9523394 (Version 7)
Quarter: 2014Q2

REPORT INFORMATION
  Report Type: Report from Study
  Country: CA (occurrence: CA)
  Receive Date: 20130913
  Receipt Date: 20140523
  Transmission Date: 20141212
  Serious: Yes (Other)
  Sender: FDA-Public Use
  Company Number: CA-ROCHE-1185966

PATIENT
  Age: 56 Year
  Sex: Female
  Weight: 72.6 kg

DRUGS (15)
  1. RITUXAN [Suspect]
     Indication: RHEUMATOID ARTHRITIS
     Dosage: DAY 1 AND 15?LAST DOSE WAS RECEIVED ON 12-FEB-2013.
     Route: 042
     Dates: start: 20130128, end: 20130212
  2. HERCEPTIN [Suspect]
     Indication: PRODUCT USED FOR UNKNOWN INDICATION
     Route: 042
  3. NAPROXEN [Concomitant]
  4. LEVOTHYROXINE [Concomitant]
  5. CYMBALTA [Concomitant]
  6. PREDNISONE [Concomitant]
  7. PANTOLOC [Concomitant]
  8. FOLIC ACID [Concomitant]
  9. LYSINE [Concomitant]
  10. NIACINAMIDE [Concomitant]
  11. VITAMIN E [Concomitant]
  12. PRIMROSE [Concomitant]
  13. DIPHENHYDRAMINE HCL [Concomitant]
     Indication: PREMEDICATION
     Route: 048
     Dates: start: 20130128
  14. ACETAMINOPHEN [Concomitant]
     Indication: PREMEDICATION
     Route: 048
     Dates: start: 20130128
  15. METHYLPREDNISOLONE [Concomitant]
     Indication: PREMEDICATION
     Route: 042
     Dates: start: 20130128

REACTIONS (5)
  - Breast cancer recurrent [Not Recovered/Not Resolved]
  - Breast mass [Not Recovered/Not Resolved]
  - Neuropathy peripheral [Unknown]
  - Throat irritation [Recovered/Resolved]
  - Arthralgia [Not Recovered/Not Resolved]
